FAERS Safety Report 9475741 (Version 4)
Quarter: 2013Q4

REPORT INFORMATION
  Report Type: Report from Study
  Country: US (occurrence: US)
  Receive Date: 20130826
  Receipt Date: 20131204
  Transmission Date: 20140711
  Serious: Yes (Other)
  Sender: FDA-Public Use
  Company Number: US-ROCHE-1264224

PATIENT
  Age: 51 Year
  Sex: Female
  Weight: 90.35 kg

DRUGS (8)
  1. PEGASYS [Suspect]
     Indication: HEPATITIS C
     Route: 058
     Dates: start: 201305, end: 20130910
  2. COPEGUS [Suspect]
     Indication: HEPATITIS C
     Dosage: 200MG PILLS, 3 IN AM, 3 IN PM
     Route: 048
     Dates: start: 201305, end: 20130910
  3. COPEGUS [Suspect]
     Route: 048
  4. INCIVEK [Suspect]
     Indication: HEPATITIS C
     Route: 065
     Dates: start: 201305, end: 20130910
  5. TRAMADOL [Concomitant]
     Indication: PAIN
  6. CELEBREX [Concomitant]
     Indication: PAIN
  7. LISINOPRIL [Concomitant]
     Indication: HYPERTENSION
     Dosage: 20-25 MG
     Route: 065
     Dates: start: 2012
  8. PAXIL [Concomitant]
     Indication: DEPRESSION
     Route: 065
     Dates: start: 2012

REACTIONS (13)
  - Transfusion [Unknown]
  - Injection site scab [Not Recovered/Not Resolved]
  - Rash pruritic [Not Recovered/Not Resolved]
  - Skin exfoliation [Recovered/Resolved]
  - Injection site pruritus [Not Recovered/Not Resolved]
  - Depression [Not Recovered/Not Resolved]
  - Dry skin [Not Recovered/Not Resolved]
  - Skin discolouration [Not Recovered/Not Resolved]
  - Photosensitivity reaction [Not Recovered/Not Resolved]
  - Pain of skin [Not Recovered/Not Resolved]
  - Anaemia [Not Recovered/Not Resolved]
  - Rash [Recovered/Resolved]
  - Skin reaction [Unknown]
